FAERS Safety Report 6026073-0 (Version None)
Quarter: 2008Q4

REPORT INFORMATION
  Report Type: 
  Country: None (occurrence: None)
  Receive Date: 20081230
  Receipt Date: 20081216
  Transmission Date: 20090506
  Serious: Yes (Other)
  Sender: FDA-Public Use
  Company Number: 2008US003285

PATIENT
  Age: 62 Year
  Sex: Female
  Weight: 64.4 kg

DRUGS (4)
  1. LEXISCAN [Suspect]
     Indication: SCAN MYOCARDIAL PERFUSION
     Dosage: 0.4 MG, IV BOLUS
     Route: 040
     Dates: start: 20081113, end: 20081113
  2. METOPROLOL TARTRATE [Concomitant]
  3. AMLODIPINE [Concomitant]
  4. TECHNETIUM (99M TC) SESTAMIBI (TECHNETIUM (99M TC) SESTAMIBI) [Concomitant]

REACTIONS (11)
  - ANXIETY [None]
  - BRADYCARDIA [None]
  - DISCOMFORT [None]
  - DIZZINESS [None]
  - DYSPNOEA [None]
  - MALAISE [None]
  - NODAL RHYTHM [None]
  - PALLOR [None]
  - SYNCOPE [None]
  - UNRESPONSIVE TO STIMULI [None]
  - VENTRICULAR EXTRASYSTOLES [None]
